FAERS Safety Report 10479511 (Version 1)
Quarter: 2014Q3

REPORT INFORMATION
  Report Type: Report from Study
  Country: US (occurrence: US)
  Receive Date: 20140926
  Receipt Date: 20140926
  Transmission Date: 20150326
  Serious: Yes (Other)
  Sender: FDA-Public Use
  Company Number: US-ALEXION PHARMACEUTICALS INC-A201002345

PATIENT
  Sex: Female

DRUGS (2)
  1. CYCLOSPORIN [Concomitant]
     Active Substance: CYCLOSPORINE
  2. SOLIRIS [Suspect]
     Active Substance: ECULIZUMAB
     Indication: PAROXYSMAL NOCTURNAL HAEMOGLOBINURIA
     Dosage: UNK
     Route: 042

REACTIONS (9)
  - Transfusion [Unknown]
  - Musculoskeletal pain [Unknown]
  - Biopsy bone marrow [Unknown]
  - Back pain [Unknown]
  - Platelet count decreased [Unknown]
  - Syncope [Unknown]
  - Abdominal pain [Unknown]
  - Dizziness [Unknown]
  - Fatigue [Unknown]
